FAERS Safety Report 8802784 (Version 2)
Quarter: 2012Q4

REPORT INFORMATION
  Report Type: 
  Country: IT (occurrence: IT)
  Receive Date: 20120921
  Receipt Date: 20120929
  Transmission Date: 20130627
  Serious: Yes (Hospitalization)
  Sender: FDA-Public Use
  Company Number: IT-009507513-1209ITA008041

PATIENT
  Age: 66 Year
  Sex: Female

DRUGS (3)
  1. SYCREST [Suspect]
     Indication: BIPOLAR DISORDER
     Dosage: 10 mg, 60 posology units as a total dose
     Route: 060
     Dates: start: 20120819, end: 20120819
  2. OXAZEPAM [Concomitant]
  3. VALPROATE MAGNESIUM [Concomitant]

REACTIONS (2)
  - Malaise [Recovering/Resolving]
  - Intentional overdose [Recovering/Resolving]
